FAERS Safety Report 9848491 (Version 1)
Quarter: 2014Q1

REPORT INFORMATION
  Report Type: Spontaneous
  Country: US (occurrence: None)
  Receive Date: 20140122
  Receipt Date: 20140122
  Transmission Date: 20141002
  Serious: Yes (Death)
  Sender: FDA-Public Use
  Company Number: B0958854A

PATIENT
  Age: 49 Year
  Sex: Female

DRUGS (3)
  1. LAMOTRIGINE (FORMULATION UNKNOWN) (GENERIC) (LAMOTRIGINE) [Suspect]
     Route: 048
  2. OXYCODONE [Suspect]
     Route: 048
  3. QUETIAPINE (FORMULATION UNKNOWN) (GENERIC) (QUETIAPINE FUMARATE) [Suspect]
     Route: 048

REACTIONS (2)
  - Intentional drug misuse [None]
  - Exposure via ingestion [None]
